FAERS Safety Report 5017951-X (Version None)
Quarter: 2006Q2

REPORT INFORMATION
  Report Type: 
  Country: None (occurrence: None)
  Receive Date: 20060605
  Receipt Date: 20060406
  Transmission Date: 20061013
  Serious: Yes (Hospitalization)
  Sender: FDA-Public Use
  Company Number: IT-GLAXOSMITHKLINE-B0420172A

PATIENT
  Age: 55 Year
  Sex: Male

DRUGS (1)
  1. AUGMENTIN '125' [Suspect]
     Indication: DENTAL OPERATION
     Dosage: 3G PER DAY
     Route: 048
     Dates: start: 20060317, end: 20060320

REACTIONS (1)
  - HEPATITIS CHOLESTATIC [None]
